FAERS Safety Report 8761817 (Version 4)
Quarter: 2013Q1

REPORT INFORMATION
  Report Type: Spontaneous
  Country: ES (occurrence: None)
  Receive Date: 20120823
  Receipt Date: 20121220
  Transmission Date: 20140127
  Serious: Yes (Other)
  Sender: FDA-Public Use
  Company Number: DSA_59037_2012

PATIENT
  Age: 31 Year
  Sex: Female

DRUGS (9)
  1. METRONIDAZOLE [Suspect]
     Indication: ECZEMA
     Dosage: TO NOT CONTINUING?
     Dates: start: 20110928
  2. QUETIAPINE FUMARATE [Suspect]
     Indication: ABNORMAL BEHAVIOUR
     Dates: start: 20110921, end: 20111004
  3. SERTRALINE [Concomitant]
  4. CLONAZEPAM [Concomitant]
  5. DIAZEPAM [Concomitant]
  6. OMEPRAZOLE [Concomitant]
  7. IBUPROFEN [Concomitant]
  8. PARACETAMOL [Concomitant]
  9. AMOXI-CLAVULANATE [Concomitant]

REACTIONS (11)
  - Parkinsonism [None]
  - Drug interaction [None]
  - Vomiting [None]
  - Muscle rigidity [None]
  - Cogwheel rigidity [None]
  - Drooling [None]
  - Amimia [None]
  - Bradykinesia [None]
  - Anxiety [None]
  - Pyrexia [None]
  - Musculoskeletal stiffness [None]
